FAERS Safety Report 23065193 (Version 2)
Quarter: 2023Q4

REPORT INFORMATION
  Report Type: Spontaneous
  Country: TR (occurrence: TR)
  Receive Date: 20231013
  Receipt Date: 20231018
  Transmission Date: 20240109
  Serious: Yes (Hospitalization, Other)
  Sender: FDA-Public Use
  Company Number: TR-FreseniusKabi-FK202316401

PATIENT
  Age: 28 Year
  Sex: Female
  Weight: 71 kg

DRUGS (4)
  1. PROPOFOL [Suspect]
     Active Substance: PROPOFOL
     Indication: General anaesthesia
     Dosage: 1000MG/50 ML
     Route: 042
     Dates: start: 20230927, end: 20230927
  2. ROCURONIUM BROMIDE [Suspect]
     Active Substance: ROCURONIUM BROMIDE
     Indication: General anaesthesia
     Route: 065
  3. FENTANYL [Suspect]
     Active Substance: FENTANYL
     Indication: General anaesthesia
  4. DESFLURANE [Suspect]
     Active Substance: DESFLURANE
     Indication: Maintenance of anaesthesia

REACTIONS (6)
  - Sepsis [Recovering/Resolving]
  - Acute kidney injury [Recovering/Resolving]
  - Disseminated intravascular coagulation [Recovering/Resolving]
  - Platelet count decreased [Recovering/Resolving]
  - Hypotension [Recovering/Resolving]
  - Nausea [Recovering/Resolving]

NARRATIVE: CASE EVENT DATE: 20230927
